FAERS Safety Report 14370131 (Version 1)
Quarter: 2018Q1

REPORT INFORMATION
  Report Type: Spontaneous
  Country: FR (occurrence: FR)
  Receive Date: 20180110
  Receipt Date: 20180110
  Transmission Date: 20180509
  Serious: Yes (Other)
  Sender: FDA-Public Use
  Company Number: FR-ROCHE-2050215

PATIENT
  Sex: Female

DRUGS (2)
  1. TRASTUZUMAB. [Suspect]
     Active Substance: TRASTUZUMAB
     Indication: HEPATOBILIARY CANCER
     Dosage: RECEIVED 244 DAYS
     Route: 065
  2. LAPATINIB [Suspect]
     Active Substance: LAPATINIB
     Indication: HEPATOBILIARY CANCER
     Dosage: RECEIVED 244 DAYS
     Route: 065

REACTIONS (2)
  - Recurrent cancer [Unknown]
  - Hepatobiliary cancer [Unknown]
